FAERS Safety Report 9659685 (Version 3)
Quarter: 2014Q3

REPORT INFORMATION
  Report Type: Report from Study
  Country: KR (occurrence: KR)
  Receive Date: 20131031
  Receipt Date: 20140925
  Transmission Date: 20150326
  Serious: Yes (Hospitalization)
  Sender: FDA-Public Use
  Company Number: KR-ABBVIE-13P-090-1160897-00

PATIENT
  Age: 20 Year
  Sex: Male
  Weight: 62 kg

DRUGS (7)
  1. SACCHAROMYCES BOULARDII LYOPHYLIZED [Concomitant]
     Indication: CROHN^S DISEASE
     Route: 048
     Dates: start: 20120409
  2. MERCAPTOPURINE. [Concomitant]
     Active Substance: MERCAPTOPURINE
     Indication: CROHN^S DISEASE
     Route: 048
  3. HUMIRA [Suspect]
     Active Substance: ADALIMUMAB
     Route: 058
     Dates: start: 20131030
  4. HUMIRA [Suspect]
     Active Substance: ADALIMUMAB
     Dosage: INDUCTION THERAPY
     Dates: start: 20131016, end: 20131016
  5. MESALAZINE [Concomitant]
     Active Substance: MESALAMINE
     Indication: CROHN^S DISEASE
     Route: 048
  6. HUMIRA [Suspect]
     Active Substance: ADALIMUMAB
     Indication: CROHN^S DISEASE
     Dosage: INDUCTION THERAPY
     Dates: start: 20131002, end: 20131002
  7. SULGLYCOTIDE [Concomitant]
     Indication: CROHN^S DISEASE
     Route: 048
     Dates: start: 20130909

REACTIONS (2)
  - Herpes zoster [Recovered/Resolved]
  - Hand fracture [Recovered/Resolved]

NARRATIVE: CASE EVENT DATE: 20131018
